FAERS Safety Report 7141797-X (Version None)
Quarter: 2010Q4

REPORT INFORMATION
  Report Type: 
  Country: None (occurrence: None)
  Receive Date: 20101207
  Receipt Date: 20101129
  Transmission Date: 20110411
  Serious: Yes (Hospitalization)
  Sender: FDA-Public Use
  Company Number: DE-BAXTER-2010BH029136

PATIENT
  Age: 29 Year
  Sex: Female

DRUGS (5)
  1. METRONIDAZOLE [Suspect]
     Indication: ANAL ABSCESS
     Route: 042
     Dates: start: 20100806, end: 20100819
  2. CIPROFLOXACIN REDIBAG [Suspect]
     Indication: ANAL ABSCESS
     Route: 042
     Dates: start: 20100806, end: 20100819
  3. AZATHIOPRINE [Suspect]
     Indication: CROHN'S DISEASE
     Route: 048
     Dates: start: 20101006, end: 20101028
  4. PREDNISOLONE [Concomitant]
     Indication: CROHN'S DISEASE
     Route: 048
     Dates: start: 20100601, end: 20101005
  5. TILIDINE HYDROCHLORIDE [Concomitant]
     Indication: PROCTALGIA
     Route: 048
     Dates: start: 20100801, end: 20101028

REACTIONS (1)
  - GASTROENTERITIS CLOSTRIDIAL [None]
